FAERS Safety Report 10237710 (Version 1)
Quarter: 2014Q2

REPORT INFORMATION
  Report Type: Spontaneous
  Country: FR (occurrence: FR)
  Receive Date: 20140616
  Receipt Date: 20140616
  Transmission Date: 20141212
  Serious: Yes (Hospitalization)
  Sender: FDA-Public Use
  Company Number: FR-MERCK-1406FRA005582

PATIENT
  Age: 59 Year
  Sex: Male

DRUGS (1)
  1. TIENAM 500MG/500MG, POUDRE POUR PERFUSION [Suspect]
     Dosage: 2000 MG (500 MG, QID)
     Route: 042
     Dates: start: 20140526, end: 20140528

REACTIONS (2)
  - Rash [Recovered/Resolved]
  - Condition aggravated [Recovered/Resolved]
